FAERS Safety Report 12600288 (Version 1)
Quarter: 2016Q3

REPORT INFORMATION
  Report Type: Spontaneous
  Country: US (occurrence: US)
  Receive Date: 20160727
  Receipt Date: 20160727
  Transmission Date: 20161109
  Serious: No
  Sender: FDA-Public Use
  Company Number: US-BRACCO-012035

PATIENT
  Sex: Male
  Weight: 114 kg

DRUGS (1)
  1. POLIBAR [Suspect]
     Active Substance: BARIUM SULFATE
     Indication: BARIUM ENEMA
     Route: 054
     Dates: start: 20150420, end: 20150420

REACTIONS (3)
  - Product physical issue [Recovered/Resolved]
  - Product reconstitution issue [None]
  - Wrong technique in product usage process [None]

NARRATIVE: CASE EVENT DATE: 20150420
